FAERS Safety Report 5142294-3 (Version None)
Quarter: 2006Q4

REPORT INFORMATION
  Report Type: 
  Country: None (occurrence: None)
  Receive Date: 20061027
  Receipt Date: 20061020
  Transmission Date: 20070319
  Serious: Yes (Hospitalization)
  Sender: FDA-Public Use
  Company Number: TAP2006Q01085

PATIENT
  Age: 87 Year
  Sex: Male

DRUGS (5)
  1. PREVACID [Suspect]
     Indication: GASTROOESOPHAGEAL REFLUX DISEASE
     Dosage: 30 MG, 1 IN 1 D, PER ORAL
     Route: 048
  2. SPIRONOLACTONE [Concomitant]
  3. FUROSEMIDE [Concomitant]
  4. NADOLOL [Concomitant]
  5. LACTULOSE [Concomitant]

REACTIONS (1)
  - ENCEPHALOPATHY [None]
